FAERS Safety Report 5803236-8 (Version None)
Quarter: 2008Q3

REPORT INFORMATION
  Report Type: 
  Country: None (occurrence: None)
  Receive Date: 20080708
  Receipt Date: 20080626
  Transmission Date: 20090109
  Serious: Yes (Hospitalization, Disabling)
  Sender: FDA-Public Use
  Company Number: ZA-ELI_LILLY_AND_COMPANY-ZA200806002281

PATIENT
  Age: 35 Year
  Sex: Female

DRUGS (1)
  1. CYMBALTA [Suspect]
     Indication: MAJOR DEPRESSION
     Dosage: 60 MG, EACH MORNING
     Route: 048
     Dates: start: 20080418

REACTIONS (17)
  - AMNESIA [None]
  - ANXIETY [None]
  - BLOOD GLUCOSE DECREASED [None]
  - DELUSIONAL DISORDER, PERSECUTORY TYPE [None]
  - DEPRESSION [None]
  - DIZZINESS [None]
  - DYSGEUSIA [None]
  - HALLUCINATIONS, MIXED [None]
  - PAIN IN EXTREMITY [None]
  - PAROSMIA [None]
  - RESTLESS LEGS SYNDROME [None]
  - SENSATION OF HEAVINESS [None]
  - SLEEP DISORDER [None]
  - SLEEP TALKING [None]
  - SURGERY [None]
  - WITHDRAWAL SYNDROME [None]
  - XANTHOPSIA [None]
